FAERS Safety Report 5557064-1 (Version None)
Quarter: 2007Q4

REPORT INFORMATION
  Report Type: 
  Country: None (occurrence: None)
  Receive Date: 20071211
  Receipt Date: 20071211
  Transmission Date: 20080405
  Serious: Yes (Other)
  Sender: FDA-Public Use
  Company Number: None

PATIENT
  Age: 50 Year
  Sex: Female
  Weight: 54.4316 kg

DRUGS (1)
  1. CHANTIX [Suspect]
     Indication: SMOKING CESSATION THERAPY
     Dosage: 2 MG DAILY
     Dates: start: 20070929, end: 20071119

REACTIONS (6)
  - ABNORMAL DREAMS [None]
  - ANGER [None]
  - CONSTIPATION [None]
  - IMPAIRED DRIVING ABILITY [None]
  - NAUSEA [None]
  - PERSONALITY CHANGE [None]
